FAERS Safety Report 8886285 (Version 2)
Quarter: 2013Q1

REPORT INFORMATION
  Report Type: Spontaneous
  Country: US (occurrence: US)
  Receive Date: 20121105
  Receipt Date: 20130107
  Transmission Date: 20140127
  Serious: Yes (Hospitalization)
  Sender: FDA-Public Use
  Company Number: PHEH2012US021615

PATIENT
  Sex: Male

DRUGS (8)
  1. DIOVAN HCT [Suspect]
     Indication: HYPERTENSION
     Dosage: 1 DF (320 MG VALS AND 25 MG HCTZ), QD
     Route: 048
  2. BAYER ASPIRIN [Concomitant]
  3. FINASTERIDE [Concomitant]
  4. VYTORIN [Concomitant]
  5. DONEPEZIL [Concomitant]
  6. NAMENDA [Concomitant]
  7. MULTIVITAMIN [Concomitant]
  8. FISH OIL [Concomitant]

REACTIONS (1)
  - Aneurysm [Unknown]
